FAERS Safety Report 23182374 (Version 1)
Quarter: 2023Q4

REPORT INFORMATION
  Report Type: Spontaneous
  Country: CN (occurrence: CN)
  Receive Date: 20231114
  Receipt Date: 20231114
  Transmission Date: 20240110
  Serious: Yes (Life-Threatening, Hospitalization, Other)
  Sender: FDA-Public Use
  Company Number: CN-ABBVIE-5491581

PATIENT
  Sex: Female
  Weight: 56 kg

DRUGS (7)
  1. VENETOCLAX [Suspect]
     Active Substance: VENETOCLAX
     Indication: Acute myeloid leukaemia
     Dosage: 400 MILLIGRAM
     Route: 048
     Dates: start: 20231023, end: 20231102
  2. METHOTREXATE [Suspect]
     Active Substance: METHOTREXATE
     Indication: Acute myeloid leukaemia
     Dosage: 10 MILLIGRAM
     Route: 065
     Dates: start: 20231020, end: 20231020
  3. DEXAMETHASONE SODIUM PHOSPHATE [Concomitant]
     Active Substance: DEXAMETHASONE SODIUM PHOSPHATE
     Indication: Adjuvant therapy
     Dosage: 5 MILLIGRAM
     Route: 065
     Dates: start: 20231020, end: 20231020
  4. SODIUM CHLORIDE [Concomitant]
     Active Substance: SODIUM CHLORIDE
     Indication: Vehicle solution use
     Dosage: 4 ML
     Route: 065
     Dates: start: 20231020, end: 20231020
  5. SODIUM CHLORIDE [Concomitant]
     Active Substance: SODIUM CHLORIDE
     Indication: Vehicle solution use
     Dosage: 1000 ML
     Route: 065
     Dates: start: 20231024, end: 20231026
  6. CYTARABINE [Suspect]
     Active Substance: CYTARABINE
     Indication: Acute myeloid leukaemia
     Dosage: 6 GRAM
     Route: 065
     Dates: start: 20231024, end: 20231026
  7. CYTARABINE [Suspect]
     Active Substance: CYTARABINE
     Indication: Acute myeloid leukaemia
     Dosage: 0.05 GRAM
     Route: 065
     Dates: start: 20231020, end: 20231020

REACTIONS (14)
  - Myelosuppression [Not Recovered/Not Resolved]
  - Pyrexia [Recovering/Resolving]
  - Rash pruritic [Recovering/Resolving]
  - Skin haemorrhage [Recovering/Resolving]
  - Agranulocytosis [Recovering/Resolving]
  - Ecchymosis [Unknown]
  - Rash erythematous [Recovering/Resolving]
  - Rash [Recovering/Resolving]
  - Acute myeloid leukaemia [Unknown]
  - Pneumonia fungal [Unknown]
  - Myelosuppression [Unknown]
  - White blood cell count decreased [Unknown]
  - Platelet count decreased [Unknown]
  - Haemorrhage subcutaneous [Unknown]

NARRATIVE: CASE EVENT DATE: 20230101
